FAERS Safety Report 11026584 (Version 2)
Quarter: 2015Q2

REPORT INFORMATION
  Report Type: Report from Study
  Country: US (occurrence: US)
  Receive Date: 20150414
  Receipt Date: 20150626
  Transmission Date: 20150821
  Serious: Yes (Hospitalization, Other)
  Sender: FDA-Public Use
  Company Number: US-BAYER-2015-067238

PATIENT
  Age: 68 Year
  Sex: Male

DRUGS (2)
  1. NEXAVAR [Suspect]
     Active Substance: SORAFENIB
     Indication: HEPATIC CANCER
     Dosage: 400 MG, BID
     Route: 048
     Dates: start: 20150313
  2. NEXAVAR [Suspect]
     Active Substance: SORAFENIB
     Indication: CHOLANGIOCARCINOMA
     Dosage: 400 MG, BID
     Route: 048
     Dates: end: 20150616

REACTIONS (8)
  - Faecaloma [None]
  - Tumour marker increased [Not Recovered/Not Resolved]
  - Decreased appetite [None]
  - Abdominal pain [Not Recovered/Not Resolved]
  - Weight decreased [Not Recovered/Not Resolved]
  - Weight decreased [None]
  - Drug ineffective [None]
  - Decreased appetite [Not Recovered/Not Resolved]

NARRATIVE: CASE EVENT DATE: 20150315
